FAERS Safety Report 8609198-2 (Version None)
Quarter: 2012Q3

REPORT INFORMATION
  Report Type: 
  Country: None (occurrence: None)
  Receive Date: 20120821
  Receipt Date: 20120713
  Transmission Date: 20120928
  Serious: No
  Sender: FDA-Public Use
  Company Number: US-009507513-2012SP030199

PATIENT

DRUGS (1)
  1. NASONEX [Suspect]
     Dosage: UNK
     Dates: start: 20070101

REACTIONS (2)
  - EXPIRED DRUG ADMINISTERED [None]
  - NASAL CONGESTION [None]
